FAERS Safety Report 18387167 (Version 1)
Quarter: 2020Q4

REPORT INFORMATION
  Report Type: Spontaneous
  Country: US (occurrence: US)
  Receive Date: 20201015
  Receipt Date: 20201015
  Transmission Date: 20210114
  Serious: Yes (Hospitalization, Disabling)
  Sender: FDA-Public Use
  Company Number: None

PATIENT
  Age: 65 Year
  Sex: Female
  Weight: 90 kg

DRUGS (11)
  1. INSULIN R-500 [Concomitant]
  2. SPINAL STIMULATOR [Concomitant]
  3. GABAPENTIN. [Concomitant]
     Active Substance: GABAPENTIN
  4. ENALAPRIL [Concomitant]
     Active Substance: ENALAPRIL
  5. FIVE REPLACED JOINTS [Concomitant]
  6. MIRAPEX [Concomitant]
     Active Substance: PRAMIPEXOLE DIHYDROCHLORIDE
  7. XIFAXAN [Concomitant]
     Active Substance: RIFAXIMIN
  8. ENOXAPARIN SODIUM INJECTION 100 MG/ML [Suspect]
     Active Substance: ENOXAPARIN SODIUM
     Indication: THROMBOSIS
     Dosage: ?          QUANTITY:1 INJECTION(S);?
     Route: 058
     Dates: start: 20201001, end: 20201003
  9. LASIX [Concomitant]
     Active Substance: FUROSEMIDE
  10. LAMICTAL [Concomitant]
     Active Substance: LAMOTRIGINE
  11. POTASSIUM [Concomitant]
     Active Substance: POTASSIUM

REACTIONS (2)
  - Internal haemorrhage [None]
  - Dyspnoea [None]

NARRATIVE: CASE EVENT DATE: 20201004
